APPROVED DRUG PRODUCT: LANOXIN
Active Ingredient: DIGOXIN
Strength: 0.25MG
Dosage Form/Route: TABLET;ORAL
Application: N020405 | Product #004 | TE Code: AB
Applicant: ADVANZ PHARMA (US) CORP
Approved: Sep 30, 1997 | RLD: Yes | RS: Yes | Type: RX